FAERS Safety Report 9870476 (Version 2)
Quarter: 2014Q1

REPORT INFORMATION
  Report Type: Spontaneous
  Country: IT (occurrence: IT)
  Receive Date: 20140205
  Receipt Date: 20140325
  Transmission Date: 20141002
  Serious: Yes (Other)
  Sender: FDA-Public Use
  Company Number: IT-MYLANLABS-2014S1001856

PATIENT
  Age: 58 Year
  Sex: Female
  Weight: 0 kg

DRUGS (5)
  1. TRIAZOLAM [Suspect]
     Indication: INSOMNIA
     Dosage: 30 DF TOTAL
     Route: 048
     Dates: start: 20131118, end: 20131118
  2. ALPRAZOLAM [Suspect]
     Indication: INSOMNIA
     Dosage: 20 ML TOTAL
     Route: 048
     Dates: start: 20131118, end: 20131118
  3. LOSARTAN ALMUS [Concomitant]
     Indication: PRODUCT USED FOR UNKNOWN INDICATION
  4. INDERAL [Concomitant]
     Indication: PRODUCT USED FOR UNKNOWN INDICATION
  5. EFEXOR [Concomitant]
     Indication: PRODUCT USED FOR UNKNOWN INDICATION
     Route: 048

REACTIONS (2)
  - Overdose [Recovering/Resolving]
  - Psychomotor skills impaired [Recovering/Resolving]
